FAERS Safety Report 5297268-9 (Version None)
Quarter: 2007Q2

REPORT INFORMATION
  Report Type: 
  Country: None (occurrence: None)
  Receive Date: 20070416
  Receipt Date: 20070404
  Transmission Date: 20071010
  Serious: Yes (Other)
  Sender: FDA-Public Use
  Company Number: BE-JNJFOC-20060306287

PATIENT
  Sex: Female
  Weight: 62 kg

DRUGS (4)
  1. ORTHO EVRA [Suspect]
     Indication: CONTRACEPTION
     Route: 062
     Dates: start: 20050401, end: 20051201
  2. OMNIBIONTA [Concomitant]
     Indication: VITAMIN SUPPLEMENTATION
  3. FERRICURE [Concomitant]
     Indication: DRUG USE FOR UNKNOWN INDICATION
  4. SYNTOCINON [Concomitant]
     Indication: ASSISTED DELIVERY

REACTIONS (3)
  - DRUG EXPOSURE DURING PREGNANCY [None]
  - PREMATURE RUPTURE OF MEMBRANES [None]
  - UNINTENDED PREGNANCY [None]
